FAERS Safety Report 10412928 (Version 1)
Quarter: 2014Q3

REPORT INFORMATION
  Report Type: Spontaneous
  Country: US (occurrence: US)
  Receive Date: 20140827
  Receipt Date: 20140827
  Transmission Date: 20150326
  Serious: No
  Sender: FDA-Public Use
  Company Number: US-GILEAD-2014-0113120

PATIENT
  Sex: Male

DRUGS (1)
  1. SOVALDI [Suspect]
     Active Substance: SOFOSBUVIR
     Indication: PRODUCT USED FOR UNKNOWN INDICATION
     Route: 065

REACTIONS (11)
  - Headache [Unknown]
  - Influenza like illness [Unknown]
  - Vomiting [Unknown]
  - Dizziness [Unknown]
  - Neck pain [Unknown]
  - Arthralgia [Unknown]
  - Diarrhoea [Unknown]
  - Insomnia [Unknown]
  - Unevaluable event [Unknown]
  - Bone pain [Unknown]
  - Back pain [Unknown]
